FAERS Safety Report 7402327-8 (Version None)
Quarter: 2011Q1

REPORT INFORMATION
  Report Type: 
  Country: None (occurrence: None)
  Receive Date: 20110330
  Receipt Date: 20110323
  Transmission Date: 20110831
  Serious: Yes (Hospitalization)
  Sender: FDA-Public Use
  Company Number: 2011PL000041

PATIENT
  Age: 9 Year
  Sex: Female

DRUGS (1)
  1. AZATHIOPRINE [Suspect]
     Indication: COLITIS ULCERATIVE
     Dosage: 1 MG/ KG; QD

REACTIONS (4)
  - HAEMATOCHEZIA [None]
  - DRUG HYPERSENSITIVITY [None]
  - HYPOCHROMIC ANAEMIA [None]
  - ACUTE FEBRILE NEUTROPHILIC DERMATOSIS [None]
